FAERS Safety Report 21989600 (Version 1)
Quarter: 2023Q1

REPORT INFORMATION
  Report Type: Spontaneous
  Country: US (occurrence: None)
  Receive Date: 20230213
  Receipt Date: 20230213
  Transmission Date: 20230418
  Serious: No
  Sender: FDA-Public Use
  Company Number: None

PATIENT
  Age: 84 Year
  Sex: Male
  Weight: 66.18 kg

DRUGS (27)
  1. ABIRATERONE [Suspect]
     Active Substance: ABIRATERONE
     Indication: Prostate cancer
     Dosage: FREQUENCY : DAILY;?
     Route: 048
     Dates: start: 202210, end: 20230213
  2. ASPIRIN [Concomitant]
     Active Substance: ASPIRIN
  3. ATORVASTATIN [Concomitant]
     Active Substance: ATORVASTATIN
  4. ATORVENT HFA [Concomitant]
  5. AZELASTINE [Concomitant]
     Active Substance: AZELASTINE
  6. CARVEDILOL [Concomitant]
     Active Substance: CARVEDILOL
  7. CLONAZEPAM [Concomitant]
     Active Substance: CLONAZEPAM
  8. DAILY MULTI [Concomitant]
  9. FINASTERIDE [Concomitant]
     Active Substance: FINASTERIDE
  10. FLOMAX [Concomitant]
     Active Substance: TAMSULOSIN HYDROCHLORIDE
  11. FLONASE [Concomitant]
     Active Substance: FLUTICASONE PROPIONATE
  12. FUANFACINE [Concomitant]
  13. HYDRALAZINE [Concomitant]
     Active Substance: HYDRALAZINE HYDROCHLORIDE
  14. HYOSCYAMINE SULFATE [Concomitant]
     Active Substance: HYOSCYAMINE SULFATE
  15. LANTUS [Concomitant]
     Active Substance: INSULIN GLARGINE
  16. LEVAQUIN [Concomitant]
     Active Substance: LEVOFLOXACIN
  17. LOSARTAN [Concomitant]
     Active Substance: LOSARTAN
  18. LUPRON [Concomitant]
     Active Substance: LEUPROLIDE ACETATE
  19. NIFEDIPINE [Concomitant]
     Active Substance: NIFEDIPINE
  20. NOVOLOG [Concomitant]
     Active Substance: INSULIN ASPART
  21. OXYBUTYNIN CHLORIDE [Concomitant]
     Active Substance: OXYBUTYNIN CHLORIDE
  22. PREDNISONE [Concomitant]
     Active Substance: PREDNISONE
  23. PROTONIX [Concomitant]
     Active Substance: PANTOPRAZOLE SODIUM
  24. SERTRALINE [Concomitant]
     Active Substance: SERTRALINE HYDROCHLORIDE
  25. SPIRONOLACTONE [Concomitant]
     Active Substance: SPIRONOLACTONE
  26. TRAMADOL [Concomitant]
     Active Substance: TRAMADOL
  27. VITAMIN D3 [Concomitant]
     Active Substance: CHOLECALCIFEROL

REACTIONS (1)
  - Hospice care [None]
